FAERS Safety Report 9384923 (Version 3)
Quarter: 2013Q3

REPORT INFORMATION
  Report Type: Spontaneous
  Country: US (occurrence: US)
  Receive Date: 20130705
  Receipt Date: 20130719
  Transmission Date: 20140515
  Serious: Yes (Death, Other)
  Sender: FDA-Public Use
  Company Number: US-JNJFOC-20130618869

PATIENT
  Age: 86 Year
  Sex: Female
  Weight: 64 kg

DRUGS (3)
  1. XARELTO [Suspect]
     Indication: CEREBROVASCULAR ACCIDENT PROPHYLAXIS
     Route: 048
     Dates: start: 20121228, end: 20130327
  2. XARELTO [Suspect]
     Indication: ATRIAL FIBRILLATION
     Route: 048
     Dates: start: 20121228, end: 20130327
  3. DICLOFENAC [Suspect]
     Indication: PRODUCT USED FOR UNKNOWN INDICATION
     Route: 065

REACTIONS (8)
  - Gastrointestinal haemorrhage [Fatal]
  - Renal failure acute [Unknown]
  - Platelet count decreased [Unknown]
  - Haematemesis [Unknown]
  - Melaena [Unknown]
  - Dehydration [Unknown]
  - Skin discolouration [Unknown]
  - Gingival bleeding [Unknown]
